FAERS Safety Report 8571313-7 (Version None)
Quarter: 2012Q3

REPORT INFORMATION
  Report Type: 
  Country: None (occurrence: None)
  Receive Date: 20120806
  Receipt Date: 20120725
  Transmission Date: 20120928
  Serious: Yes (Hospitalization)
  Sender: FDA-Public Use
  Company Number: US-BAYER-201017685NA

PATIENT
  Age: 43 Year
  Sex: Female
  Weight: 54.875 kg

DRUGS (4)
  1. DARVOCET [Concomitant]
  2. YASMIN [Suspect]
     Indication: CONTRACEPTION
     Dosage: 1 TAB/DAY
     Route: 048
     Dates: start: 20061121, end: 20070823
  3. COLACE [Concomitant]
     Dosage: 100 MG, UNK
  4. AMBIEN [Concomitant]
     Dosage: 10 MG, UNK

REACTIONS (4)
  - DYSPNOEA [None]
  - PULMONARY EMBOLISM [None]
  - PLEURAL EFFUSION [None]
  - PULMONARY INFARCTION [None]
